FAERS Safety Report 26198254 (Version 1)
Quarter: 2025Q4

REPORT INFORMATION
  Report Type: Report from Study
  Country: US (occurrence: None)
  Receive Date: 20251224
  Receipt Date: 20251224
  Transmission Date: 20260117
  Serious: Yes (Other)
  Sender: UCB
  Company Number: US-UCBSA-2025080850

PATIENT

DRUGS (1)
  1. MIDAZOLAM [Suspect]
     Active Substance: MIDAZOLAM
     Indication: Seizure cluster
     Dosage: 5MG- USE 1 SPRAY IN 1 NOSTRIL AT ONSET OF CLUSTER SEIZURE OR IF SEIZURE WAS GREATER THAN 5 MIN MAY REPEAT ONCE

REACTIONS (3)
  - Seizure [Recovered/Resolved]
  - Hallucination [Not Recovered/Not Resolved]
  - Inappropriate schedule of product administration [Unknown]
